FAERS Safety Report 13801387 (Version 4)
Quarter: 2017Q3

REPORT INFORMATION
  Report Type: Spontaneous
  Country: US (occurrence: US)
  Receive Date: 20170727
  Receipt Date: 20170905
  Transmission Date: 20171127
  Serious: Yes (Hospitalization, Other)
  Sender: FDA-Public Use
  Company Number: US-PFIZER INC-2017320111

PATIENT
  Age: 52 Year
  Sex: Male
  Weight: 100 kg

DRUGS (14)
  1. VITAMIN B12 [Concomitant]
     Active Substance: CYANOCOBALAMIN
     Indication: VITAMIN B12 DECREASED
     Dosage: 1000 MG, 1X/DAY
     Route: 048
     Dates: start: 20170613
  2. NEURONTIN [Concomitant]
     Active Substance: GABAPENTIN
     Dosage: 100 MG, 1X/DAY
     Route: 048
  3. FINASTERIDE. [Concomitant]
     Active Substance: FINASTERIDE
     Indication: BLADDER DISORDER
     Dosage: 5 MG, 1X/DAY
     Route: 048
     Dates: start: 201702
  4. HYDROCODONE BITARTRATE AND ACETAMINOPHEN [Concomitant]
     Active Substance: ACETAMINOPHEN\HYDROCODONE BITARTRATE
     Dosage: 5/325MG, 1-2 TAB Q 6HR
     Route: 048
  5. BACLOFEN. [Concomitant]
     Active Substance: BACLOFEN
     Indication: MUSCLE SPASMS
     Dosage: 5 MG, 4X/DAY (1/2 TAB)
     Route: 048
  6. TOVIAZ [Suspect]
     Active Substance: FESOTERODINE FUMARATE
     Indication: HYPERTONIC BLADDER
  7. POTASSIUM CHLORIDE. [Concomitant]
     Active Substance: POTASSIUM CHLORIDE
     Indication: HYPOKALAEMIC SYNDROME
     Dosage: 20 MEQ, 1X/DAY (7 AM)
     Dates: start: 201701
  8. WARFARIN [Concomitant]
     Active Substance: WARFARIN
     Indication: THROMBOSIS
  9. TOVIAZ [Suspect]
     Active Substance: FESOTERODINE FUMARATE
     Indication: NEUROGENIC BLADDER
     Dosage: 4 MG, 1X/DAY
     Dates: start: 20170602, end: 20170717
  10. CYMBALTA [Concomitant]
     Active Substance: DULOXETINE HYDROCHLORIDE
     Indication: PAIN
     Dosage: 30 MG, 2X/DAY
     Route: 048
  11. GABAPENTIN. [Concomitant]
     Active Substance: GABAPENTIN
     Indication: RESTLESS LEGS SYNDROME
     Dosage: 100 MG, 1X/DAY
     Route: 048
     Dates: start: 201706
  12. ZINC. [Concomitant]
     Active Substance: ZINC
     Indication: BLOOD ZINC DECREASED
     Dosage: 50 MG, 2X/DAY
     Route: 048
     Dates: start: 20170613
  13. FLOMAX [Concomitant]
     Active Substance: TAMSULOSIN HYDROCHLORIDE
     Indication: URINARY RETENTION
     Dosage: 0.4 MG, 2X/DAY
     Route: 048
  14. WARFARIN [Concomitant]
     Active Substance: WARFARIN
     Indication: THROMBOSIS PROPHYLAXIS
     Dosage: 6-9 MG, 1-2 TAB EVERY 6HR
     Route: 048
     Dates: start: 201701

REACTIONS (12)
  - Ammonia increased [Recovered/Resolved]
  - Hepatic enzyme increased [Recovered/Resolved]
  - Mental impairment [Recovering/Resolving]
  - Urinary tract infection [Recovered/Resolved]
  - Abnormal behaviour [Recovered/Resolved]
  - Cognitive disorder [Recovered/Resolved]
  - Hepatic steatosis [Recovered/Resolved]
  - Cholelithiasis [Unknown]
  - Confusional state [Recovered/Resolved]
  - Weight increased [Unknown]
  - Condition aggravated [Recovered/Resolved]
  - Thinking abnormal [Recovered/Resolved]

NARRATIVE: CASE EVENT DATE: 20170603
